FAERS Safety Report 13052887 (Version 1)
Quarter: 2016Q4

REPORT INFORMATION
  Report Type: Spontaneous
  Country: US (occurrence: US)
  Receive Date: 20161221
  Receipt Date: 20161221
  Transmission Date: 20170207
  Serious: No
  Sender: FDA-Public Use
  Company Number: US-TAKEDA-2016TUS022570

PATIENT
  Age: 18 Month
  Sex: Female

DRUGS (1)
  1. COLCRYS [Suspect]
     Active Substance: COLCHICINE
     Indication: PFAPA SYNDROME
     Dosage: 0.6 MG, QOD
     Route: 048

REACTIONS (2)
  - No adverse event [Unknown]
  - Drug prescribing error [Unknown]
